FAERS Safety Report 5417990-0 (Version None)
Quarter: 2007Q3

REPORT INFORMATION
  Report Type: 
  Country: None (occurrence: None)
  Receive Date: 20070817
  Receipt Date: 20070813
  Transmission Date: 20080115
  Serious: Yes (Disabling, Other)
  Sender: FDA-Public Use
  Company Number: BR-AVENTIS-200716108GDDC

PATIENT
  Age: 51 Year
  Sex: Male
  Weight: 90 kg

DRUGS (9)
  1. LANTUS [Suspect]
     Route: 058
     Dates: start: 20050101
  2. LANTUS [Suspect]
     Route: 058
     Dates: start: 20070701
  3. LANTUS [Suspect]
     Route: 058
     Dates: start: 20070701
  4. OPTIPEN (INSULIN PUMP) [Suspect]
     Dates: start: 20050101
  5. ATENSINA [Concomitant]
     Indication: BLOOD PRESSURE
     Dosage: DOSE QUANTITY: 2
     Dates: start: 19870101
  6. PRESSAT [Concomitant]
     Indication: BLOOD PRESSURE
     Dosage: DOSE QUANTITY: 2
     Dates: start: 19870101
  7. RANITIDINE [Concomitant]
     Indication: GASTROINTESTINAL DISORDER
     Dosage: DOSE QUANTITY: 2
     Dates: start: 20050101
  8. CYCLOSPORINE [Concomitant]
     Dosage: DOSE QUANTITY: 3
     Dates: start: 20070501
  9. AZATHIOPRINE [Concomitant]
     Dosage: DOSE QUANTITY: 4
     Dates: start: 20070501

REACTIONS (2)
  - BLINDNESS [None]
  - HYPERGLYCAEMIA [None]
